FAERS Safety Report 9162728 (Version 1)
Quarter: 2013Q1

REPORT INFORMATION
  Report Type: Spontaneous
  Country: US (occurrence: None)
  Receive Date: 20130227
  Receipt Date: 20130227
  Transmission Date: 20140127
  Serious: Yes (Death, Life-Threatening, Hospitalization)
  Sender: FDA-Public Use
  Company Number: FK201300499

PATIENT
  Age: 63 Year
  Sex: Female

DRUGS (4)
  1. CLINDAMYCIN [Suspect]
     Indication: WOUND INFECTION STAPHYLOCOCCAL
     Route: 048
  2. LEVOTHYROXINE (LEVOTHYROXINE) [Concomitant]
  3. ATORVASTATIN (ATORVASTATIN) [Concomitant]
  4. ACETAMINOPHEN WITH HYDROCODONE [Concomitant]

REACTIONS (11)
  - Drug reaction with eosinophilia and systemic symptoms [None]
  - Alanine aminotransferase increased [None]
  - Aspartate aminotransferase increased [None]
  - Blood alkaline phosphatase increased [None]
  - Blood bilirubin increased [None]
  - Blood creatinine increased [None]
  - Lymphadenopathy mediastinal [None]
  - Pancreatitis [None]
  - Renal failure acute [None]
  - International normalised ratio increased [None]
  - Multi-organ failure [None]
